FAERS Safety Report 6496821-4 (Version None)
Quarter: 2009Q4

REPORT INFORMATION
  Report Type: 
  Country: None (occurrence: None)
  Receive Date: 20091125
  Receipt Date: 20090127
  Transmission Date: 20100525
  Serious: Yes (Hospitalization)
  Sender: FDA-Public Use
  Company Number: 2009BH001479

PATIENT
  Age: 46 Year
  Sex: Male

DRUGS (1)
  1. DIANEAL [Suspect]
     Indication: RENAL FAILURE CHRONIC
     Dosage: 14 L ; EVERY DAY ; IP
     Route: 033

REACTIONS (3)
  - DEVICE RELATED INFECTION [None]
  - FATIGUE [None]
  - MYALGIA [None]
